FAERS Safety Report 14828249 (Version 1)
Quarter: 2018Q2

REPORT INFORMATION
  Report Type: Spontaneous
  Country: US (occurrence: US)
  Receive Date: 20180406
  Receipt Date: 20180406
  Transmission Date: 20180711
  Serious: Yes (Other)
  Sender: FDA-Public Use
  Company Number: None

PATIENT
  Age: 43 Year
  Sex: Male
  Weight: 69.9 kg

DRUGS (6)
  1. KETOROLAC INJECTION 30MG EVERY 6 HOURS [Concomitant]
     Dates: start: 20180209, end: 20180210
  2. ALPRAZOLAM 0.25 MG BY MOUTH THREE TIMES A DAY AS NEEDED [Concomitant]
     Dates: start: 20180207, end: 20180214
  3. TRAMADOL 50 MG PO Q6H PRN MODERATE PAIN [Concomitant]
     Dates: start: 20180209, end: 20180210
  4. THYROID DESICCATED TAB 120MG BY MOUTH ONCE DAILY [Concomitant]
     Dates: start: 20180209, end: 20180210
  5. LIDOCAINE TRANSDERMAL PATCH 5%, TOPICALLY EVERY 24 HOURS [Concomitant]
     Dates: start: 20180209, end: 20180210
  6. PROCHLORPERAZINE. [Suspect]
     Active Substance: PROCHLORPERAZINE
     Indication: RECTAL CANCER METASTATIC
     Route: 040

REACTIONS (8)
  - Mental status changes [None]
  - Confusional state [None]
  - Anxiety [None]
  - Mental impairment [None]
  - Dysarthria [None]
  - Tachycardia [None]
  - Agitation [None]
  - Restlessness [None]

NARRATIVE: CASE EVENT DATE: 20180209
